FAERS Safety Report 6128144-7 (Version None)
Quarter: 2009Q1

REPORT INFORMATION
  Report Type: 
  Country: None (occurrence: None)
  Receive Date: 20090319
  Receipt Date: 20090317
  Transmission Date: 20090719
  Serious: Yes (Death)
  Sender: FDA-Public Use
  Company Number: JHP200900080

PATIENT
  Age: 51 Year
  Sex: Female

DRUGS (2)
  1. ADRENALIN IN OIL INJ [Suspect]
     Indication: SEPTIC SHOCK
     Dosage: 3 ML, SINGLE
     Dates: start: 19980720, end: 19980720
  2. ANTIBIOTICS [Concomitant]

REACTIONS (1)
  - CARDIAC FAILURE [None]
